FAERS Safety Report 20599578 (Version 2)
Quarter: 2022Q2

REPORT INFORMATION
  Report Type: Spontaneous
  Country: EG (occurrence: EG)
  Receive Date: 20220316
  Receipt Date: 20220401
  Transmission Date: 20220720
  Serious: Yes (Other)
  Sender: FDA-Public Use
  Company Number: EG-JNJFOC-20220323809

PATIENT
  Sex: Male

DRUGS (1)
  1. ERLEADA [Suspect]
     Active Substance: APALUTAMIDE
     Indication: Prostate cancer
     Route: 048
     Dates: start: 202202, end: 202203

REACTIONS (8)
  - Hemiparesis [Recovering/Resolving]
  - Dizziness [Unknown]
  - Pain in extremity [Unknown]
  - Dysarthria [Recovering/Resolving]
  - Vision blurred [Recovering/Resolving]
  - Headache [Recovering/Resolving]
  - Confusional state [Recovering/Resolving]
  - Ischaemia [Recovering/Resolving]
